FAERS Safety Report 23054534 (Version 1)
Quarter: 2023Q4

REPORT INFORMATION
  Report Type: Report from Study
  Country: CA (occurrence: CA)
  Receive Date: 20231011
  Receipt Date: 20231011
  Transmission Date: 20240110
  Serious: Yes (Death)
  Sender: FDA-Public Use
  Company Number: CA-BAYER-2023A142764

PATIENT
  Age: 71 Year
  Sex: Male

DRUGS (2)
  1. EYLEA [Suspect]
     Active Substance: AFLIBERCEPT
     Indication: Diabetic retinal oedema
     Dosage: 2 MG, ONCE, SOLUTION FOR INJECTION, 40 MG/ML
     Dates: start: 20200914, end: 20200914
  2. EYLEA [Suspect]
     Active Substance: AFLIBERCEPT
     Dosage: 2 MG, ONCE, SOLUTION FOR INJECTION, 40 MG/ML
     Dates: start: 20230831, end: 20230831

REACTIONS (1)
  - Death [Fatal]

NARRATIVE: CASE EVENT DATE: 20230922
